FAERS Safety Report 6431687-X (Version None)
Quarter: 2009Q4

REPORT INFORMATION
  Report Type: 
  Country: None (occurrence: None)
  Receive Date: 20091103
  Receipt Date: 20091021
  Transmission Date: 20100525
  Serious: Yes (Life-Threatening, Hospitalization, Disabling)
  Sender: FDA-Public Use
  Company Number: OSCN-GE-0703S-0140

PATIENT
  Age: 26 Year
  Sex: Female

DRUGS (14)
  1. OMNISCAN [Suspect]
     Indication: PSOAS ABSCESS
     Dosage: SEE IMAGE
     Route: 042
     Dates: start: 20021119, end: 20021119
  2. OMNISCAN [Suspect]
     Indication: SEPSIS
     Dosage: SEE IMAGE
     Route: 042
     Dates: start: 20021119, end: 20021119
  3. OMNISCAN [Suspect]
     Indication: PSOAS ABSCESS
     Dosage: SEE IMAGE
     Route: 042
     Dates: start: 20031205, end: 20031205
  4. OMNISCAN [Suspect]
     Indication: SEPSIS
     Dosage: SEE IMAGE
     Route: 042
     Dates: start: 20031205, end: 20031205
  5. OMNISCAN [Suspect]
     Indication: PSOAS ABSCESS
     Dosage: SEE IMAGE
     Route: 042
     Dates: start: 20040810, end: 20040810
  6. OMNISCAN [Suspect]
     Indication: SEPSIS
     Dosage: SEE IMAGE
     Route: 042
     Dates: start: 20040810, end: 20040810
  7. OMNISCAN [Suspect]
     Indication: PSOAS ABSCESS
     Dosage: SEE IMAGE
     Route: 042
     Dates: start: 20041202, end: 20041202
  8. OMNISCAN [Suspect]
     Indication: SEPSIS
     Dosage: SEE IMAGE
     Route: 042
     Dates: start: 20041202, end: 20041202
  9. OMNISCAN [Suspect]
     Indication: PSOAS ABSCESS
     Dosage: SEE IMAGE
     Route: 042
     Dates: start: 20050215, end: 20050216
  10. OMNISCAN [Suspect]
     Indication: SEPSIS
     Dosage: SEE IMAGE
     Route: 042
     Dates: start: 20050215, end: 20050216
  11. OMNISCAN [Suspect]
     Indication: PSOAS ABSCESS
     Dosage: SEE IMAGE
     Route: 042
     Dates: start: 20050401, end: 20050401
  12. OMNISCAN [Suspect]
     Indication: SEPSIS
     Dosage: SEE IMAGE
     Route: 042
     Dates: start: 20050401, end: 20050401
  13. CONTRAST MEDIUM UNSPECIFIED [Concomitant]
  14. GADOPENTETATE DIMEGLUMINE [Concomitant]

REACTIONS (10)
  - ABDOMINAL ABSCESS [None]
  - DRUG INEFFECTIVE [None]
  - ILEUS [None]
  - METABOLIC ACIDOSIS [None]
  - NEPHROGENIC SYSTEMIC FIBROSIS [None]
  - NEUROPATHY PERIPHERAL [None]
  - PSOAS ABSCESS [None]
  - SEPSIS [None]
  - UROSEPSIS [None]
  - WHEELCHAIR USER [None]
